FAERS Safety Report 5643061-4 (Version None)
Quarter: 2008Q1

REPORT INFORMATION
  Report Type: 
  Country: None (occurrence: None)
  Receive Date: 20080228
  Receipt Date: 20080221
  Transmission Date: 20080703
  Serious: Yes (Other)
  Sender: FDA-Public Use
  Company Number: US-MERCK-0802USA05779

PATIENT
  Age: 64 Year
  Sex: Female

DRUGS (2)
  1. CLINORIL [Suspect]
     Route: 048
  2. CLINORIL [Suspect]
     Route: 048

REACTIONS (1)
  - MENINGITIS [None]
